FAERS Safety Report 6468231-7 (Version None)
Quarter: 2009Q4

REPORT INFORMATION
  Report Type: 
  Country: None (occurrence: None)
  Receive Date: 20091119
  Receipt Date: 20090727
  Transmission Date: 20100525
  Serious: No
  Sender: FDA-Public Use
  Company Number: WAES 0907USA04942

PATIENT
  Age: 81 Year
  Sex: Female

DRUGS (1)
  1. JANUVIA [Suspect]

REACTIONS (1)
  - BLOOD GLUCOSE INCREASED [None]
